FAERS Safety Report 24857373 (Version 3)
Quarter: 2025Q1

REPORT INFORMATION
  Report Type: Spontaneous
  Country: US (occurrence: US)
  Receive Date: 20250117
  Receipt Date: 20250214
  Transmission Date: 20250408
  Serious: Yes (Hospitalization, Other)
  Sender: AMGEN
  Company Number: US-AMGEN-USASP2025006076

PATIENT
  Age: 86 Year
  Sex: Female

DRUGS (2)
  1. REPATHA [Suspect]
     Active Substance: EVOLOCUMAB
     Indication: Blood cholesterol increased
     Dosage: 420 MILLIGRAM, QMO
     Route: 065
  2. REPATHA [Suspect]
     Active Substance: EVOLOCUMAB
     Route: 065

REACTIONS (6)
  - Retinal haemorrhage [Unknown]
  - Bladder disorder [Unknown]
  - Cerebral disorder [Unknown]
  - Muscular weakness [Unknown]
  - Device difficult to use [Unknown]
  - Product preparation error [Unknown]

NARRATIVE: CASE EVENT DATE: 20241201
